FAERS Safety Report 15694599 (Version 1)
Quarter: 2018Q4

REPORT INFORMATION
  Report Type: Spontaneous
  Country: US (occurrence: US)
  Receive Date: 20181126
  Receipt Date: 20181126
  Transmission Date: 20190205
  Serious: No
  Sender: FDA-Public Use
  Company Number: None

PATIENT
  Age: 48 Year
  Sex: Female

DRUGS (1)
  1. LETAIRIS [Suspect]
     Active Substance: AMBRISENTAN
     Indication: PULMONARY ARTERIAL HYPERTENSION
     Route: 048
     Dates: start: 20180604

REACTIONS (5)
  - Chest pain [None]
  - Dyspnoea [None]
  - Nausea [None]
  - Feeling hot [None]
  - Vomiting [None]

NARRATIVE: CASE EVENT DATE: 20181108
